FAERS Safety Report 17498560 (Version 3)
Quarter: 2021Q4

REPORT INFORMATION
  Report Type: Spontaneous
  Country: FR (occurrence: FR)
  Receive Date: 20200304
  Receipt Date: 20211124
  Transmission Date: 20220303
  Serious: Yes (Hospitalization, Other)
  Sender: FDA-Public Use
  Company Number: FR-OTSUKA-2020_000682

PATIENT
  Sex: Male
  Weight: 145 kg

DRUGS (14)
  1. ARIPIPRAZOLE [Suspect]
     Active Substance: ARIPIPRAZOLE
     Indication: Product used for unknown indication
     Dosage: UNK
     Route: 065
  2. ABILIFY [Suspect]
     Active Substance: ARIPIPRAZOLE
     Indication: Obsessive-compulsive disorder
     Dosage: 5 MILLIGRAM, QD(5 MG, QD (IN THE EVENING))
     Route: 048
     Dates: start: 2000
  3. METFORMIN [Concomitant]
     Active Substance: METFORMIN HYDROCHLORIDE
     Indication: Product used for unknown indication
     Dosage: UNK
     Route: 065
  4. METFORMIN [Concomitant]
     Active Substance: METFORMIN HYDROCHLORIDE
     Dosage: UNK
     Route: 065
     Dates: start: 2012
  5. GLIMEPIRIDE [Concomitant]
     Active Substance: GLIMEPIRIDE
     Indication: Product used for unknown indication
     Dosage: UNK
     Route: 065
  6. LEVOTHYROXINE [Concomitant]
     Active Substance: LEVOTHYROXINE
     Indication: Product used for unknown indication
     Dosage: UNK
     Route: 065
  7. LEVOTHYROXINE [Concomitant]
     Active Substance: LEVOTHYROXINE
     Dosage: UNK
     Route: 065
     Dates: start: 2019
  8. ESCITALOPRAM OXALATE [Concomitant]
     Active Substance: ESCITALOPRAM OXALATE
     Indication: Product used for unknown indication
     Dosage: UNK
     Route: 065
  9. ESCITALOPRAM OXALATE [Concomitant]
     Active Substance: ESCITALOPRAM OXALATE
     Dosage: UNK
     Route: 065
     Dates: start: 2010
  10. LATANOPROST [Concomitant]
     Active Substance: LATANOPROST
     Indication: Product used for unknown indication
     Dosage: UNK
     Route: 065
  11. INSULIN NOS [Concomitant]
     Active Substance: INSULIN NOS
     Indication: Product used for unknown indication
     Dosage: UNK
     Route: 065
  12. INSULIN NOS [Concomitant]
     Active Substance: INSULIN NOS
     Dosage: UNK
     Route: 065
     Dates: start: 2012
  13. VICTOZA [Concomitant]
     Active Substance: LIRAGLUTIDE
     Indication: Product used for unknown indication
     Dosage: UNK
     Dates: start: 2012
  14. HUMALOG [Concomitant]
     Active Substance: INSULIN LISPRO
     Indication: Product used for unknown indication
     Dosage: UNK
     Route: 065
     Dates: start: 2012

REACTIONS (29)
  - Food craving [Unknown]
  - Skin disorder [Not Recovered/Not Resolved]
  - Blood iron abnormal [Unknown]
  - Blood thyroid stimulating hormone abnormal [Unknown]
  - Diabetic neuropathy [Unknown]
  - Neurotransmitter level altered [Unknown]
  - Neuropathy peripheral [Unknown]
  - Serum serotonin decreased [Unknown]
  - Rheumatic disorder [Unknown]
  - Obsessive-compulsive disorder [Unknown]
  - Weight increased [Not Recovered/Not Resolved]
  - Diabetes mellitus [Not Recovered/Not Resolved]
  - Mental fatigue [Unknown]
  - Product use in unapproved indication [Unknown]
  - Blood thyroid stimulating hormone increased [Unknown]
  - Iron deficiency [Unknown]
  - Tremor [Unknown]
  - Hypertriglyceridaemia [Unknown]
  - Transaminases increased [Unknown]
  - Insomnia [Unknown]
  - Hyperglycaemia [Unknown]
  - Amylase increased [Unknown]
  - Carpal tunnel syndrome [Unknown]
  - Heart rate decreased [Unknown]
  - Restless legs syndrome [Unknown]
  - Hypercalcaemia [Unknown]
  - Blood glucagon increased [Unknown]
  - Product dose omission issue [Unknown]
  - Neuromyopathy [Unknown]

NARRATIVE: CASE EVENT DATE: 20000101
